FAERS Safety Report 14187170 (Version 1)
Quarter: 2017Q4

REPORT INFORMATION
  Report Type: Spontaneous
  Country: US (occurrence: US)
  Receive Date: 20171113
  Receipt Date: 20171113
  Transmission Date: 20180321
  Serious: Yes (Disabling, Other)
  Sender: FDA-Public Use
  Company Number: None

PATIENT
  Age: 62 Year
  Sex: Female
  Weight: 72 kg

DRUGS (4)
  1. DICLOFENAC OINTMENT [Concomitant]
  2. AMISH ORIGINS DEEP PENETRATION OINTMENT [Concomitant]
  3. FENTANYL TRANSDERMAL SYSTEM [Suspect]
     Active Substance: FENTANYL
     Indication: PAIN
     Dates: start: 20150501, end: 20160401
  4. LIDOCAINE OINTMENT [Concomitant]
     Active Substance: LIDOCAINE

REACTIONS (8)
  - Personality disorder [None]
  - Road traffic accident [None]
  - Pruritus [None]
  - Bladder spasm [None]
  - Pain [None]
  - Muscle spasms [None]
  - Inability to afford medication [None]
  - Drug ineffective [None]

NARRATIVE: CASE EVENT DATE: 20151114
